FAERS Safety Report 6360342-X (Version None)
Quarter: 2009Q3

REPORT INFORMATION
  Report Type: 
  Country: None (occurrence: None)
  Receive Date: 20090917
  Receipt Date: 20090908
  Transmission Date: 20100115
  Serious: Yes (Other)
  Sender: FDA-Public Use
  Company Number: PHHY2009AU38421

PATIENT
  Age: 47 Year
  Sex: Male

DRUGS (3)
  1. MYCOPHENOLATE MOFETIL [Suspect]
     Indication: LUPUS NEPHRITIS
     Dosage: 1 G, BID
  2. METHYLPREDNISOLONE [Suspect]
     Indication: LUPUS NEPHRITIS
     Route: 042
  3. PREDNISOLONE [Suspect]
     Indication: LUPUS NEPHRITIS
     Dosage: 50 MG

REACTIONS (4)
  - HAEMODIALYSIS [None]
  - PERITONITIS BACTERIAL [None]
  - RENAL FAILURE CHRONIC [None]
  - STAPHYLOCOCCAL SEPSIS [None]
